FAERS Safety Report 4316765-3 (Version None)
Quarter: 2004Q1

REPORT INFORMATION
  Report Type: 
  Country: None (occurrence: None)
  Receive Date: 20040311
  Receipt Date: 20040226
  Transmission Date: 20041129
  Serious: Yes (Hospitalization, Other)
  Sender: FDA-Public Use
  Company Number: 200410126BFR

PATIENT
  Age: 34 Year
  Sex: Male

DRUGS (12)
  1. CIPROFLOXACIN [Suspect]
     Dosage: INTRAVENOUS
     Route: 042
  2. AUGMENTIN [Suspect]
  3. CEFTAZIDIME PENTAHYDRATE [Suspect]
  4. EUPRESSYL (URAPIDIL) [Suspect]
  5. ACETAMINOPHEN [Suspect]
  6. BURINEX [Concomitant]
  7. SUFENTA [Concomitant]
  8. MIDAZOLAM HCL [Concomitant]
  9. ALBUTEROL SULFATE [Concomitant]
  10. BRICANYL [Concomitant]
  11. HELIOX [Concomitant]
  12. TIENAM [Concomitant]

REACTIONS (3)
  - AGRANULOCYTOSIS [None]
  - DERMATITIS BULLOUS [None]
  - SEPSIS [None]
